FAERS Safety Report 7519625-X (Version None)
Quarter: 2011Q2

REPORT INFORMATION
  Report Type: 
  Country: None (occurrence: None)
  Receive Date: 20110602
  Receipt Date: 20110523
  Transmission Date: 20111010
  Serious: Yes (Hospitalization)
  Sender: FDA-Public Use
  Company Number: A0928983A

PATIENT
  Age: 57 Year
  Sex: Male
  Weight: 92.1 kg

DRUGS (18)
  1. LEVOTHROID [Concomitant]
  2. FLUCONAZOLE [Concomitant]
  3. PREVIDENT [Concomitant]
  4. MELPHALAN HYDROCHLORIDE [Suspect]
     Indication: AMYLOIDOSIS
     Dosage: 100MGM2 CYCLIC
     Route: 042
     Dates: start: 20110503
  5. ALLOPURINOL [Concomitant]
  6. CRESTOR [Concomitant]
  7. VELCADE [Suspect]
     Indication: AMYLOIDOSIS
     Dosage: 1.3MGM2 CYCLIC
     Route: 042
     Dates: start: 20110315
  8. KLOR-CON [Concomitant]
  9. ATIVAN [Concomitant]
  10. KYTRIL [Concomitant]
  11. PROCHLORPERAZINE TAB [Concomitant]
  12. DEXAMETHASONE [Suspect]
     Indication: AMYLOIDOSIS
     Dosage: 20MG CYCLIC
     Route: 042
     Dates: start: 20110315
  13. LASIX [Concomitant]
  14. PROTONIX [Concomitant]
  15. DEXAMETHASONE [Suspect]
     Dosage: 4MG TWICE PER DAY
     Route: 048
  16. VITAMIN D [Concomitant]
  17. HYDROCHLOROTHIAZIDE [Concomitant]
  18. LEVAQUIN [Concomitant]

REACTIONS (2)
  - ASTHENIA [None]
  - DEHYDRATION [None]
